FAERS Safety Report 4771005-6 (Version None)
Quarter: 2005Q3

REPORT INFORMATION
  Report Type: 
  Country: None (occurrence: None)
  Receive Date: 20050914
  Receipt Date: 20050829
  Transmission Date: 20060218
  Serious: Yes (Hospitalization)
  Sender: FDA-Public Use
  Company Number: GBR-2005-0001863

PATIENT
  Age: 57 Year
  Sex: Male

DRUGS (11)
  1. SEVREDOL TABLETS(MORPHINE SULFATE) IR TABLET [Suspect]
     Indication: PAIN
     Dosage: 60 MG, DAILY, ORAL
     Route: 048
     Dates: end: 20050711
  2. DURAGESIC-100 [Suspect]
     Indication: PAIN
     Dosage: SEE IMAGE
     Route: 061
     Dates: start: 20050701, end: 20050711
  3. DURAGESIC-100 [Suspect]
     Indication: PAIN
     Dosage: SEE IMAGE
     Route: 061
     Dates: end: 20050711
  4. ESOMEPRAZOLE (ESOMEPRAZOLE) [Concomitant]
  5. DULPHALAC (LACTULOSE) [Concomitant]
  6. FOLIC ACID [Concomitant]
  7. DICLOFENAC (DICLOFENAC) [Concomitant]
  8. VALIUM [Concomitant]
  9. NEURONTIN [Concomitant]
  10. LEXOMIL (BROMAZEPAM) [Concomitant]
  11. TAXOL [Concomitant]

REACTIONS (10)
  - ABNORMAL BEHAVIOUR [None]
  - C-REACTIVE PROTEIN INCREASED [None]
  - CONFUSIONAL STATE [None]
  - DEHYDRATION [None]
  - HAEMOGLOBIN DECREASED [None]
  - LUNG DISORDER [None]
  - OXYGEN SATURATION DECREASED [None]
  - PLATELET COUNT DECREASED [None]
  - TACHYCARDIA [None]
  - WHITE BLOOD CELL COUNT DECREASED [None]
